FAERS Safety Report 5412063-5 (Version None)
Quarter: 2007Q3

REPORT INFORMATION
  Report Type: 
  Country: None (occurrence: None)
  Receive Date: 20070809
  Receipt Date: 20070730
  Transmission Date: 20080115
  Serious: Yes (Other)
  Sender: FDA-Public Use
  Company Number: 17161

PATIENT
  Age: 8 Year
  Sex: Male

DRUGS (10)
  1. METHOTREXATE [Suspect]
     Indication: BURKITT'S LYMPHOMA STAGE III
  2. METHOTREXATE [Suspect]
     Indication: BURKITT'S LYMPHOMA STAGE III
  3. METHOTREXATE [Suspect]
     Indication: BURKITT'S LYMPHOMA STAGE III
     Dosage: 3 G/M2 IV
     Route: 042
  4. METHOTREXATE [Suspect]
     Indication: BURKITT'S LYMPHOMA STAGE III
  5. RADIOGRAPHIC CONTRAST [Suspect]
     Indication: COMPUTERISED TOMOGRAM
  6. CYCLOPHOSPHAMIDE [Concomitant]
  7. VINCRISTINE [Concomitant]
  8. PREDNISONE TAB [Concomitant]
  9. DOXORUBICIN HYDROCHLORIDE [Concomitant]
  10. HYDROCORTISONE [Concomitant]

REACTIONS (13)
  - BONE MARROW FAILURE [None]
  - CONTRAST MEDIA REACTION [None]
  - DRUG INTERACTION [None]
  - DRUG LEVEL INCREASED [None]
  - DRUG TOXICITY [None]
  - ENCEPHALITIS [None]
  - GRAND MAL CONVULSION [None]
  - HYPERTENSION [None]
  - MUCOSAL INFLAMMATION [None]
  - ORAL INTAKE REDUCED [None]
  - PYREXIA [None]
  - RENAL FAILURE ACUTE [None]
  - VOMITING [None]
